FAERS Safety Report 23724814 (Version 2)
Quarter: 2024Q2

REPORT INFORMATION
  Report Type: Spontaneous
  Country: CN (occurrence: CN)
  Receive Date: 20240409
  Receipt Date: 20240419
  Transmission Date: 20240716
  Serious: Yes (Other)
  Sender: FDA-Public Use
  Company Number: CN-PFIZER INC-PV202400045482

PATIENT
  Age: 41 Year
  Sex: Female
  Weight: 66 kg

DRUGS (2)
  1. EPIRUBICIN [Suspect]
     Active Substance: EPIRUBICIN
     Indication: Breast cancer
     Dosage: 130 MG, 1X/DAY
     Route: 041
     Dates: start: 20240321, end: 20240321
  2. PACLITAXEL [Suspect]
     Active Substance: PACLITAXEL
     Indication: Breast cancer
     Dosage: 370 MG, 1X/DAY
     Route: 041
     Dates: start: 20240321, end: 20240321

REACTIONS (5)
  - Nausea [Recovering/Resolving]
  - Vomiting [Recovering/Resolving]
  - Gastrooesophageal reflux disease [Recovering/Resolving]
  - Decreased appetite [Recovering/Resolving]
  - Eructation [Recovering/Resolving]

NARRATIVE: CASE EVENT DATE: 20240322
